FAERS Safety Report 8045050-1 (Version None)
Quarter: 2012Q1

REPORT INFORMATION
  Report Type: 
  Country: None (occurrence: None)
  Receive Date: 20120111
  Receipt Date: 20120111
  Transmission Date: 20120608
  Serious: Yes (Disabling, Other)
  Sender: FDA-Public Use
  Company Number: None

PATIENT
  Sex: Female
  Weight: 76.2043 kg

DRUGS (1)
  1. CALCITONIN SALMON [Suspect]
     Indication: BONE DISORDER
     Dosage: 1 SPRAY 1 X DAILY
     Route: 045
     Dates: start: 20110201, end: 20110901

REACTIONS (1)
  - ANOSMIA [None]
